FAERS Safety Report 5168429-4 (Version None)
Quarter: 2006Q4

REPORT INFORMATION
  Report Type: 
  Country: None (occurrence: None)
  Receive Date: 20061208
  Receipt Date: 20060918
  Transmission Date: 20070319
  Serious: Yes (Hospitalization, Other)
  Sender: FDA-Public Use
  Company Number: DE-BRISTOL-MYERS SQUIBB COMPANY-13512447

PATIENT
  Age: 43 Year
  Sex: Female

DRUGS (7)
  1. CISPLATIN [Suspect]
     Indication: GASTRIC CANCER
     Route: 041
     Dates: start: 20060830, end: 20060830
  2. FLUOROURACIL [Suspect]
     Indication: GASTRIC CANCER
     Route: 041
     Dates: start: 20060830, end: 20060904
  3. VITAMIN E [Concomitant]
     Indication: DYSPEPSIA
     Route: 048
     Dates: start: 20060101, end: 20060904
  4. SAB SIMPLEX [Concomitant]
     Indication: FLATULENCE
     Route: 048
     Dates: end: 20060904
  5. PANCREATIN TRIPLE STRENGTH CAP [Concomitant]
     Indication: FLATULENCE
     Route: 048
  6. MACROGOL [Concomitant]
     Indication: CONSTIPATION
     Route: 048
  7. XUSAL [Concomitant]
     Indication: MULTIPLE ALLERGIES
     Route: 048
     Dates: start: 20060309

REACTIONS (2)
  - DEHYDRATION [None]
  - MUCOSAL INFLAMMATION [None]
